FAERS Safety Report 17665397 (Version 1)
Quarter: 2020Q2

REPORT INFORMATION
  Report Type: Spontaneous
  Country: US (occurrence: US)
  Receive Date: 20200414
  Receipt Date: 20200414
  Transmission Date: 20200713
  Serious: Yes (Life-Threatening, Other)
  Sender: FDA-Public Use
  Company Number: US-STRIDES ARCOLAB LIMITED-2020SP004653

PATIENT
  Age: 85 Year
  Sex: Female

DRUGS (2)
  1. LIDOCAINE. [Suspect]
     Active Substance: LIDOCAINE
     Indication: LOCAL ANAESTHESIA
  2. LIDOCAINE. [Suspect]
     Active Substance: LIDOCAINE
     Indication: CARDIAC PACEMAKER INSERTION
     Dosage: 50 CC OF 1 PERCENT, SINGLE
     Route: 058

REACTIONS (6)
  - Acute respiratory distress syndrome [Unknown]
  - Local anaesthetic systemic toxicity [Unknown]
  - Cardiac arrest [Recovered/Resolved]
  - Cardiac failure [Unknown]
  - Pulmonary oedema [Unknown]
  - Left ventricular dysfunction [Recovered/Resolved]
